FAERS Safety Report 24671698 (Version 2)
Quarter: 2024Q4

REPORT INFORMATION
  Report Type: Spontaneous
  Country: JP (occurrence: JP)
  Receive Date: 20241127
  Receipt Date: 20241227
  Transmission Date: 20250115
  Serious: Yes (Other)
  Sender: OTSUKA
  Company Number: JP-OTSUKA-2024_031411

PATIENT
  Age: 8 Decade
  Sex: Female

DRUGS (1)
  1. REXULTI [Suspect]
     Active Substance: BREXPIPRAZOLE
     Indication: Depression
     Dosage: UNK
     Route: 048

REACTIONS (3)
  - Urinary retention [Recovered/Resolved]
  - Full blood count decreased [Not Recovered/Not Resolved]
  - Hepatic enzyme increased [Unknown]
